FAERS Safety Report 7619423-2 (Version None)
Quarter: 2011Q3

REPORT INFORMATION
  Report Type: 
  Country: None (occurrence: None)
  Receive Date: 20110719
  Receipt Date: 20110705
  Transmission Date: 20111222
  Serious: No
  Sender: FDA-Public Use
  Company Number: US-BIOGENIDEC-2011BI024435

PATIENT
  Age: 39 Year
  Sex: Female

DRUGS (5)
  1. CHANTIX [Concomitant]
  2. TYSABRI [Suspect]
     Indication: MULTIPLE SCLEROSIS
     Route: 042
     Dates: start: 20071015
  3. SYNTHROID [Concomitant]
  4. BLOOD PRESSURE MEDICATION (NOS) [Concomitant]
  5. TYSABRI [Suspect]
     Route: 042
     Dates: start: 20050111, end: 20050211

REACTIONS (6)
  - ANKLE FRACTURE [None]
  - PALPITATIONS [None]
  - HYPERTHYROIDISM [None]
  - SUICIDAL IDEATION [None]
  - SKIN DISCOLOURATION [None]
  - FALL [None]
